FAERS Safety Report 23778858 (Version 1)
Quarter: 2024Q2

REPORT INFORMATION
  Report Type: Spontaneous
  Country: FR (occurrence: FR)
  Receive Date: 20240424
  Receipt Date: 20240424
  Transmission Date: 20240715
  Serious: Yes (Other)
  Sender: FDA-Public Use
  Company Number: None

PATIENT
  Age: 36 Year
  Sex: Female
  Weight: 76 kg

DRUGS (1)
  1. TALTZ [Suspect]
     Active Substance: IXEKIZUMAB
     Indication: Psoriatic arthropathy
     Dosage: 80 MG, OTHER, EVERY 2 WEEKS
     Route: 058
     Dates: start: 20191016

REACTIONS (2)
  - Tooth infection [Not Recovered/Not Resolved]
  - Gingival recession [Not Recovered/Not Resolved]

NARRATIVE: CASE EVENT DATE: 20210101
